FAERS Safety Report 24864421 (Version 3)
Quarter: 2025Q3

REPORT INFORMATION
  Report Type: Spontaneous
  Country: US (occurrence: US)
  Receive Date: 20250120
  Receipt Date: 20250705
  Transmission Date: 20251021
  Serious: No
  Sender: TRAVERE THERAPEUTICS
  Company Number: US-TRAVERE-2024TVT01338

PATIENT
  Age: 42 Year
  Sex: Male

DRUGS (1)
  1. FILSPARI [Suspect]
     Active Substance: SPARSENTAN
     Indication: IgA nephropathy
     Route: 048

REACTIONS (6)
  - Sleep disorder [Recovering/Resolving]
  - Fatigue [Unknown]
  - Pain [Unknown]
  - Malaise [Unknown]
  - Toothache [Unknown]
  - Weight decreased [Unknown]

NARRATIVE: CASE EVENT DATE: 20250504
